FAERS Safety Report 13368370 (Version 1)
Quarter: 2017Q1

REPORT INFORMATION
  Report Type: Spontaneous
  Country: FR (occurrence: FR)
  Receive Date: 20170324
  Receipt Date: 20170324
  Transmission Date: 20170429
  Serious: Yes (Other)
  Sender: FDA-Public Use
  Company Number: FR-VALIDUS PHARMACEUTICALS LLC-FR-2017VAL000387

PATIENT
  Age: 67 Year
  Sex: Male

DRUGS (4)
  1. CARBAMAZEPINE. [Suspect]
     Active Substance: CARBAMAZEPINE
     Indication: EXOPHTHALMOS
     Dosage: 200 MG, BID
     Dates: start: 2015
  2. CARBAMAZEPINE. [Suspect]
     Active Substance: CARBAMAZEPINE
     Indication: MULTIPLE SCLEROSIS
  3. CARBAMAZEPINE. [Suspect]
     Active Substance: CARBAMAZEPINE
     Indication: ISCHAEMIC NEUROPATHY
     Dosage: UNK, (RE-STARTED AND STOPPED)
  4. IBRUTINIB [Suspect]
     Active Substance: IBRUTINIB
     Indication: MANTLE CELL LYMPHOMA
     Dosage: 560 MG, QD
     Dates: start: 20150421

REACTIONS (2)
  - Mantle cell lymphoma [Unknown]
  - Drug interaction [Unknown]
